FAERS Safety Report 25654446 (Version 1)
Quarter: 2025Q3

REPORT INFORMATION
  Report Type: Spontaneous
  Country: CA (occurrence: CA)
  Receive Date: 20250807
  Receipt Date: 20250807
  Transmission Date: 20251021
  Serious: Yes (Hospitalization)
  Sender: BOEHRINGER INGELHEIM
  Company Number: CA-BoehringerIngelheim-2025-BI-087804

PATIENT
  Age: 79 Year
  Sex: Female
  Weight: 68 kg

DRUGS (13)
  1. JARDIANCE [Suspect]
     Active Substance: EMPAGLIFLOZIN
     Indication: Diabetes mellitus
  2. HYDROCHLOROTHIAZIDE [Suspect]
     Active Substance: HYDROCHLOROTHIAZIDE
     Indication: Hypertension
  3. BISOPROLOL [Concomitant]
     Active Substance: BISOPROLOL
     Indication: Product used for unknown indication
  4. ASPIRIN [Concomitant]
     Active Substance: ASPIRIN
     Indication: Product used for unknown indication
  5. ATACAND [Concomitant]
     Active Substance: CANDESARTAN CILEXETIL
     Indication: Product used for unknown indication
  6. CHOLECALCIFEROL [Concomitant]
     Active Substance: CHOLECALCIFEROL
     Indication: Product used for unknown indication
  7. VITAMIN B COMPLEX [Concomitant]
     Active Substance: CYANOCOBALAMIN\DEXPANTHENOL\NIACINAMIDE\PYRIDOXINE HYDROCHLORIDE\RIBOFLAVIN 5^-PHOSPHATE SODIUM\THIA
     Indication: Product used for unknown indication
  8. DOXAZOSIN [Concomitant]
     Active Substance: DOXAZOSIN MESYLATE
     Indication: Product used for unknown indication
  9. CRESTOR - 20MG [Concomitant]
     Indication: Product used for unknown indication
  10. PREVACID SRC 30MG [Concomitant]
     Indication: Product used for unknown indication
  11. SYNTHROID - TAB 150MCG [Concomitant]
     Indication: Product used for unknown indication
  12. GLUCOPHAGE [Concomitant]
     Active Substance: METFORMIN HYDROCHLORIDE
     Indication: Product used for unknown indication
  13. OZEMPIC [Concomitant]
     Active Substance: SEMAGLUTIDE

REACTIONS (2)
  - Asthenia [Recovered/Resolved]
  - Blood electrolytes abnormal [Recovered/Resolved]
